FAERS Safety Report 5549379-8 (Version None)
Quarter: 2007Q4

REPORT INFORMATION
  Report Type: 
  Country: None (occurrence: None)
  Receive Date: 20071212
  Receipt Date: 20070516
  Transmission Date: 20080405
  Serious: No
  Sender: FDA-Public Use
  Company Number: US-AMGEN-KDL225808

PATIENT
  Sex: Female

DRUGS (1)
  1. ENBREL [Suspect]
     Indication: RHEUMATOID ARTHRITIS
     Dates: start: 20060216

REACTIONS (4)
  - ARTHRALGIA [None]
  - CRYING [None]
  - EMOTIONAL DISORDER [None]
  - FEELING OF DESPAIR [None]
